FAERS Safety Report 7735541-2 (Version None)
Quarter: 2011Q3

REPORT INFORMATION
  Report Type: 
  Country: None (occurrence: None)
  Receive Date: 20110907
  Receipt Date: 20110830
  Transmission Date: 20111222
  Serious: Yes (Hospitalization)
  Sender: FDA-Public Use
  Company Number: US-ABBOTT-11P-163-0850562-00

PATIENT
  Sex: Female

DRUGS (4)
  1. PREDNISONE [Concomitant]
     Indication: RHEUMATOID ARTHRITIS
  2. METHOTREXATE [Concomitant]
     Indication: RHEUMATOID ARTHRITIS
  3. HUMIRA [Suspect]
     Indication: RHEUMATOID ARTHRITIS
     Dates: start: 20050101, end: 20101101
  4. PLAQUENIL [Concomitant]
     Indication: RHEUMATOID ARTHRITIS

REACTIONS (7)
  - PYREXIA [None]
  - MENINGITIS [None]
  - NASOPHARYNGITIS [None]
  - CONFUSIONAL STATE [None]
  - CHOLELITHIASIS [None]
  - PNEUMONIA [None]
  - INTRA-ABDOMINAL HAEMATOMA [None]
